FAERS Safety Report 18212827 (Version 2)
Quarter: 2020Q3

REPORT INFORMATION
  Report Type: Spontaneous
  Country: FR (occurrence: FR)
  Receive Date: 20200831
  Receipt Date: 20200903
  Transmission Date: 20201103
  Serious: Yes (Hospitalization, Other)
  Sender: FDA-Public Use
  Company Number: FR-PFIZER INC-2020329159

PATIENT
  Age: 67 Year
  Sex: Female
  Weight: 60 kg

DRUGS (9)
  1. ELIQUIS [Suspect]
     Active Substance: APIXABAN
     Indication: PRODUCT ADMINISTRATION ERROR
     Dosage: 2.5 MG, SINGLE (TOTAL)
     Route: 048
     Dates: start: 20200719, end: 20200719
  2. TEGRETOL [Suspect]
     Active Substance: CARBAMAZEPINE
     Indication: PRODUCT ADMINISTRATION ERROR
     Dosage: 300 MG, SINGLE (TOTAL)
     Route: 048
     Dates: start: 20200719, end: 20200719
  3. ZYPREXA [Suspect]
     Active Substance: OLANZAPINE
     Indication: PRODUCT ADMINISTRATION ERROR
     Dosage: 5 MG, SINGLE (TOTAL)
     Route: 048
     Dates: start: 20200719, end: 20200719
  4. TEMESTA [LORAZEPAM] [Suspect]
     Active Substance: LORAZEPAM
     Indication: PRODUCT ADMINISTRATION ERROR
     Dosage: 3.5 MG, SINGLE (TOTAL)
     Route: 048
     Dates: start: 20200719, end: 20200719
  5. CLOPIXOL [ZUCLOPENTHIXOL ACETATE] [Suspect]
     Active Substance: ZUCLOPENTHIXOL ACETATE
     Indication: PRODUCT ADMINISTRATION ERROR
     Dosage: 20 MG, SINGLE (TOTAL)
     Route: 048
     Dates: start: 20200719, end: 20200719
  6. PANTOPRAZOLE [Suspect]
     Active Substance: PANTOPRAZOLE
     Indication: PRODUCT ADMINISTRATION ERROR
     Dosage: 80 MG, SINGLE (TOTAL)
     Route: 048
     Dates: start: 20200719, end: 20200719
  7. CALCIDOSE [CALCIUM CARBONATE;COLECALCIFEROL] [Suspect]
     Active Substance: CALCIUM CARBONATE\CHOLECALCIFEROL
     Indication: PRODUCT ADMINISTRATION ERROR
     Dosage: 500 MG, SINGLE (TOTAL)
     Route: 048
     Dates: start: 20200719, end: 20200719
  8. ACIDE FOLIQUE [Suspect]
     Active Substance: FOLIC ACID
     Indication: PRODUCT ADMINISTRATION ERROR
     Dosage: 0.4 MG, SINGLE (TOTAL)
     Route: 048
     Dates: start: 20200719, end: 20200719
  9. LEPONEX [Suspect]
     Active Substance: CLOZAPINE
     Indication: PRODUCT ADMINISTRATION ERROR
     Dosage: 200 MG, SINGLE (TOTAL)
     Route: 048
     Dates: start: 20200719, end: 20200719

REACTIONS (5)
  - Product administration error [Recovered/Resolved]
  - Speech disorder [Recovered/Resolved]
  - Coma [Recovered/Resolved]
  - Somnolence [Recovered/Resolved]
  - Wrong drug [Recovered/Resolved]

NARRATIVE: CASE EVENT DATE: 20200719
